FAERS Safety Report 8515638 (Version 2)
Quarter: 2012Q4

REPORT INFORMATION
  Report Type: 
  Country: US (occurrence: US)
  Receive Date: 20120417
  Receipt Date: 20120830
  Transmission Date: 20130627
  Serious: Yes (Hospitalization)
  Sender: FDA-Public Use
  Company Number: US-BAYER-2012-034661

PATIENT
  Age: 16 Year
  Sex: Female
  Weight: 68.03 kg

DRUGS (16)
  1. YAZ [Suspect]
     Indication: ACNE
     Dosage: UNK
     Route: 048
     Dates: start: 2006, end: 2008
  2. YAZ [Suspect]
     Indication: OVARIAN CYST
  3. ZOLOFT [Concomitant]
     Dosage: UNK
  4. ORTHOCEPT [Concomitant]
     Dosage: UNK
  5. LODRANE [Concomitant]
     Indication: MULTIPLE ALLERGIES
     Dosage: 12-90 mg daily
     Dates: start: 20070828, end: 2009
  6. LODRANE [Concomitant]
     Indication: MULTIPLE ALLERGIES
  7. OXYCODONE/APAP [Concomitant]
     Dosage: 5-325
     Dates: start: 20080618
  8. METHYLPREDNISOLONE [Concomitant]
     Dosage: 4 mg, UNK
     Dates: start: 20080711
  9. NAPROXEN [Concomitant]
     Indication: BACK PAIN
     Dosage: 550 mg, twice daily
     Dates: start: 20051201, end: 20080820
  10. DIFLUNISAL [Concomitant]
     Dosage: 500 mg, UNK
     Dates: start: 20080820
  11. CEPHALEXIN [Concomitant]
     Dosage: 500 mg, UNK
     Dates: start: 20080820, end: 20080912
  12. SERTRALINE [Concomitant]
     Dosage: 100mg ; 50 mg
     Route: 048
     Dates: start: 20080820, end: 20081006
  13. PROMETHAZINE [Concomitant]
     Indication: NAUSEA
     Dosage: 25 mg, 12.5 mg to 25 mg every 4 to 6 hours PRN
     Route: 048
     Dates: start: 20051201, end: 20100617
  14. PROMETHAZINE [Concomitant]
     Indication: NAUSEA
     Dosage: 25 mg, 12.5 mg to 25 mg every 4 to 6 hours PRN
     Route: 030
     Dates: start: 20051201, end: 20100617
  15. IMITREX [Concomitant]
     Indication: MIGRAINE
     Dosage: 25 to 50 mg prn
     Route: 048
     Dates: start: 20071029, end: 20100617
  16. HYDROCODONE W/APAP [Concomitant]
     Indication: PAIN
     Dosage: 5 to 7.5-500 every 4 [hours] prn
     Route: 048
     Dates: start: 20080620, end: 20100617

REACTIONS (3)
  - Pulmonary embolism [None]
  - Deep vein thrombosis [None]
  - Pain [None]
